FAERS Safety Report 23932377 (Version 1)
Quarter: 2024Q2

REPORT INFORMATION
  Report Type: Spontaneous
  Country: CN (occurrence: CN)
  Receive Date: 20240603
  Receipt Date: 20240603
  Transmission Date: 20240716
  Serious: Yes (Other)
  Sender: FDA-Public Use
  Company Number: CN-PFIZER INC-PV202400071470

PATIENT
  Age: 53 Year
  Sex: Female
  Weight: 50 kg

DRUGS (4)
  1. EPIRUBICIN HYDROCHLORIDE [Suspect]
     Active Substance: EPIRUBICIN HYDROCHLORIDE
     Indication: Lymphoma
     Dosage: 20 MG, 1X/DAY
     Route: 041
     Dates: start: 20240515, end: 20240518
  2. RITUXIMAB [Suspect]
     Active Substance: RITUXIMAB
     Indication: Lymphoma
     Dosage: 100 MG, 1X/DAY
     Route: 041
     Dates: start: 20240515, end: 20240518
  3. CYCLOPHOSPHAMIDE [Suspect]
     Active Substance: CYCLOPHOSPHAMIDE
     Indication: Lymphoma
     Dosage: 0.6 G, 1X/DAY
     Route: 041
     Dates: start: 20240515, end: 20240518
  4. VINCRISTINE SULFATE [Suspect]
     Active Substance: VINCRISTINE SULFATE
     Indication: Lymphoma
     Dosage: 2 MG, 1X/DAY
     Route: 041
     Dates: start: 20240515, end: 20240518

REACTIONS (3)
  - Hepatic enzyme increased [Unknown]
  - Bile acids increased [Unknown]
  - Drug-induced liver injury [Unknown]

NARRATIVE: CASE EVENT DATE: 20240520
